FAERS Safety Report 14397591 (Version 1)
Quarter: 2018Q1

REPORT INFORMATION
  Report Type: Spontaneous
  Country: US (occurrence: US)
  Receive Date: 20180116
  Receipt Date: 20180116
  Transmission Date: 20180509
  Serious: No
  Sender: FDA-Public Use
  Company Number: US-ALLERGAN-1767158US

PATIENT
  Sex: Female
  Weight: 52.15 kg

DRUGS (1)
  1. BOTOX COSMETIC [Suspect]
     Active Substance: ONABOTULINUMTOXINA
     Indication: PRODUCT USED FOR UNKNOWN INDICATION
     Dosage: UNK, SINGLE
     Route: 030
     Dates: start: 20171113, end: 20171113

REACTIONS (6)
  - Rash [Unknown]
  - Swelling [Unknown]
  - Injection site urticaria [Unknown]
  - Urticaria [Unknown]
  - Dysphagia [Unknown]
  - Hypersensitivity [Unknown]
